FAERS Safety Report 8604751-4 (Version None)
Quarter: 2012Q3

REPORT INFORMATION
  Report Type: 
  Country: None (occurrence: None)
  Receive Date: 20120820
  Receipt Date: 20120809
  Transmission Date: 20120928
  Serious: Yes (Hospitalization)
  Sender: FDA-Public Use
  Company Number: JP-JNJFOC-20120802050

PATIENT
  Age: 72 Year
  Sex: Female
  Weight: 58 kg

DRUGS (4)
  1. WARFARIN SODIUM [Interacting]
     Route: 048
     Dates: end: 20120618
  2. WARFARIN SODIUM [Interacting]
     Route: 048
     Dates: start: 20120709
  3. WARFARIN SODIUM [Interacting]
     Indication: PRODUCT USED FOR UNKNOWN INDICATION
     Route: 048
     Dates: start: 20120809
  4. MICONAZOLE [Suspect]
     Indication: OESOPHAGEAL CANDIDIASIS
     Dosage: ONCE
     Route: 048
     Dates: start: 20120608, end: 20120613

REACTIONS (3)
  - HAEMORRHAGE SUBCUTANEOUS [None]
  - INTERNATIONAL NORMALISED RATIO INCREASED [None]
  - DRUG INTERACTION [None]
